FAERS Safety Report 13066066 (Version 3)
Quarter: 2017Q1

REPORT INFORMATION
  Report Type: Spontaneous
  Country: US (occurrence: US)
  Receive Date: 20161227
  Receipt Date: 20170313
  Transmission Date: 20170428
  Serious: Yes (Other)
  Sender: FDA-Public Use
  Company Number: US-BAYER-2016-240689

PATIENT
  Age: 70 Year
  Sex: Female
  Weight: 85.99 kg

DRUGS (1)
  1. COPPERTONE WATER BABIES SPF 50 [Suspect]
     Active Substance: AVOBENZONE\HOMOSALATE\OCTISALATE\OCTOCRYLENE\OXYBENZONE
     Indication: THERAPEUTIC SKIN CARE TOPICAL
     Dosage: 1 DF, UNK
     Route: 061
     Dates: start: 201612, end: 20161219

REACTIONS (3)
  - Eye burns [Recovered/Resolved]
  - Ocular hyperaemia [Recovered/Resolved]
  - Product use issue [None]

NARRATIVE: CASE EVENT DATE: 20161218
